FAERS Safety Report 5128209-2 (Version None)
Quarter: 2006Q4

REPORT INFORMATION
  Report Type: 
  Country: None (occurrence: None)
  Receive Date: 20061011
  Receipt Date: 20060928
  Transmission Date: 20070319
  Serious: Yes (Other)
  Sender: FDA-Public Use
  Company Number: 2006121093

PATIENT
  Age: 3 Year
  Sex: Female
  Weight: 17 kg

DRUGS (1)
  1. SOLU-MEDROL [Suspect]
     Indication: VASCULITIS
     Dosage: 32 MG (32 MG), INTRAVENOUS
     Route: 042
     Dates: start: 20060925, end: 20060925

REACTIONS (4)
  - BODY TEMPERATURE DECREASED [None]
  - HYPERHIDROSIS [None]
  - SINUS ARRHYTHMIA [None]
  - URINE KETONE BODY PRESENT [None]
